FAERS Safety Report 7306113 (Version 3)
Quarter: 2013Q4

REPORT INFORMATION
  Report Type: Spontaneous
  Country: US (occurrence: None)
  Receive Date: 20100204
  Receipt Date: 20131024
  Transmission Date: 20140711
  Serious: Yes (Other)
  Sender: FDA-Public Use
  Company Number: 2010S1000359

PATIENT
  Age: 53 Year
  Sex: Male

DRUGS (1)
  1. SODIUM PHOSPHATE, DIBASIC, HEPTAHYDRATE\SODIUM PHOSPHATE, MONOBASIC, MONOHYDRATE [Suspect]
     Indication: COLONOSCOPY
     Dosage: TOTAL
     Route: 048
     Dates: start: 20010801, end: 20010801

REACTIONS (5)
  - Haemodialysis [None]
  - Renal transplant [None]
  - Renal failure acute [None]
  - Acute phosphate nephropathy [None]
  - Renal failure chronic [None]
